FAERS Safety Report 7638945-1 (Version None)
Quarter: 2011Q3

REPORT INFORMATION
  Report Type: 
  Country: None (occurrence: None)
  Receive Date: 20110721
  Receipt Date: 20110712
  Transmission Date: 20111222
  Serious: Yes (Other)
  Sender: FDA-Public Use
  Company Number: 982963

PATIENT
  Sex: Male

DRUGS (15)
  1. DACARBAZINE [Suspect]
     Indication: HODGKIN'S DISEASE
     Dosage: EIGHT CYCLES
  2. DOXORUBICIN HCL [Suspect]
     Indication: HODGKIN'S DISEASE
     Dosage: EIGHT CYCLES, WEEKLY
  3. (MECHLORETHAMINE) [Suspect]
     Indication: HODGKIN'S DISEASE
     Dosage: WEEKLY, FOUR CYCLES
  4. VINCRISTINE [Suspect]
     Indication: HODGKIN'S DISEASE
     Dosage: WEEKLY, FOUR CYCLES
  5. CISPLATIN [Suspect]
     Indication: HODGKIN'S DISEASE
  6. ETOPOSIDE [Suspect]
     Indication: HODGKIN'S DISEASE
  7. PROCARBAZINE HYDROCHLORIDE [Suspect]
     Indication: HODGKIN'S DISEASE
     Dosage: FOUR CYCLES
  8. MELPHALAN HYDROCHLORIDE [Suspect]
     Indication: BONE MARROW CONDITIONING REGIMEN
  9. (THERAPEUTIC RADIOPHARMACEUTICALS) [Suspect]
     Indication: HODGKIN'S DISEASE
     Dosage: 36-GY, TOTAL DOSE 4500 CGY
  10. VINBLASTINE SULFATE [Suspect]
     Indication: HODGKIN'S DISEASE
     Dosage: EIGHT CYCLES, WEEKLY
  11. CYTARABINE [Suspect]
     Indication: HODGKIN'S DISEASE
  12. DEXAMETHASONE [Suspect]
     Indication: HODGKIN'S DISEASE
  13. BLEOMYCIN SULFATE [Suspect]
     Indication: HODGKIN'S DISEASE
     Dosage: EIGHT CYCLES, WEEKLY
  14. CARMUSTINE [Suspect]
  15. PREDNISONE [Suspect]
     Indication: HODGKIN'S DISEASE
     Dosage: WEEKLY, FOUR CYCLES

REACTIONS (3)
  - ATRIAL FIBRILLATION [None]
  - MYELODYSPLASTIC SYNDROME [None]
  - HODGKIN'S DISEASE RECURRENT [None]
